FAERS Safety Report 7347030-8 (Version None)
Quarter: 2011Q1

REPORT INFORMATION
  Report Type: 
  Country: None (occurrence: None)
  Receive Date: 20110311
  Receipt Date: 20110308
  Transmission Date: 20110831
  Serious: Yes (Death, Other)
  Sender: FDA-Public Use
  Company Number: PHHY2011DE19317

PATIENT
  Sex: Female
  Weight: 2.8 kg

DRUGS (1)
  1. VALSARTAN [Suspect]
     Route: 064

REACTIONS (8)
  - PULMONARY HYPOPLASIA [None]
  - PNEUMOTHORAX [None]
  - DRUG EXPOSURE DURING PREGNANCY [None]
  - SKULL MALFORMATION [None]
  - NEONATAL ANURIA [None]
  - NEONATAL HYPOTENSION [None]
  - CARDIOPULMONARY FAILURE [None]
  - HYPOTONIA [None]
